FAERS Safety Report 10053721 (Version 1)
Quarter: 2014Q2

REPORT INFORMATION
  Report Type: Spontaneous
  Country: BR (occurrence: BR)
  Receive Date: 20140402
  Receipt Date: 20140402
  Transmission Date: 20141212
  Serious: Yes (Other)
  Sender: FDA-Public Use
  Company Number: BR-009507513-1403BRA013552

PATIENT
  Age: 54 Year
  Sex: Male
  Weight: 94 kg

DRUGS (1)
  1. VYTORIN [Suspect]
     Indication: BLOOD CHOLESTEROL INCREASED
     Dosage: 10/20 MG, QPM
     Route: 048
     Dates: start: 2005

REACTIONS (16)
  - Myocardial infarction [Unknown]
  - Diabetes mellitus [Not Recovered/Not Resolved]
  - Hypertension [Not Recovered/Not Resolved]
  - Coronary artery occlusion [Unknown]
  - Arterial catheterisation [Recovered/Resolved]
  - Angina pectoris [Unknown]
  - Cardiomyopathy [Not Recovered/Not Resolved]
  - Ocular icterus [Not Recovered/Not Resolved]
  - Pruritus [Not Recovered/Not Resolved]
  - Insomnia [Not Recovered/Not Resolved]
  - Headache [Not Recovered/Not Resolved]
  - Myalgia [Not Recovered/Not Resolved]
  - Urinary tract infection [Unknown]
  - Blood urine present [Recovered/Resolved]
  - Haemorrhage urinary tract [Unknown]
  - Renal atrophy [Not Recovered/Not Resolved]
